FAERS Safety Report 6338185-2 (Version None)
Quarter: 2009Q3

REPORT INFORMATION
  Report Type: 
  Country: None (occurrence: None)
  Receive Date: 20090902
  Receipt Date: 20090824
  Transmission Date: 20100115
  Serious: Yes (Other)
  Sender: FDA-Public Use
  Company Number: AU-PURDUE-USA-2009-0039778

PATIENT
  Sex: Female

DRUGS (4)
  1. OXYCODONE HYDROCHLORIDE [Suspect]
     Indication: DRUG USE FOR UNKNOWN INDICATION
     Dosage: 70 MG, UNK
     Route: 048
     Dates: start: 20080921, end: 20080922
  2. DALTEPARIN SODIUM [Concomitant]
  3. DICLOFENAC SODIUM [Concomitant]
  4. PARACETAMOL [Concomitant]

REACTIONS (3)
  - BLINDNESS [None]
  - CONFUSIONAL STATE [None]
  - DELIRIUM [None]
